FAERS Safety Report 23529966 (Version 1)
Quarter: 2024Q1

REPORT INFORMATION
  Report Type: Spontaneous
  Country: DE (occurrence: DE)
  Receive Date: 20240216
  Receipt Date: 20240216
  Transmission Date: 20240410
  Serious: Yes (Other)
  Sender: FDA-Public Use
  Company Number: DE-002147023-NVSC2023DE209392

PATIENT
  Sex: Female

DRUGS (2)
  1. GILENYA [Suspect]
     Active Substance: FINGOLIMOD HYDROCHLORIDE
     Indication: Relapsing-remitting multiple sclerosis
     Dosage: UNK
     Route: 065
     Dates: start: 20170101, end: 20200101
  2. METHYLPREDNISOLONE [Suspect]
     Active Substance: METHYLPREDNISOLONE
     Indication: Product used for unknown indication
     Dosage: 1000 MG, (5 X 10 WEEKS EARLIER)
     Route: 065
     Dates: end: 2023

REACTIONS (3)
  - CD19 lymphocytes decreased [Unknown]
  - JC polyomavirus test positive [Unknown]
  - Natural killer cell count decreased [Unknown]

NARRATIVE: CASE EVENT DATE: 20230815
